FAERS Safety Report 8220765-0 (Version None)
Quarter: 2012Q1

REPORT INFORMATION
  Report Type: 
  Country: None (occurrence: None)
  Receive Date: 20120307
  Receipt Date: 20090728
  Transmission Date: 20120608
  Serious: No
  Sender: FDA-Public Use
  Company Number: PHEH2009US10855

PATIENT
  Age: 75 Year
  Sex: Female

DRUGS (1)
  1. AFINITOR [Suspect]
     Indication: PANCREATIC NEUROENDOCRINE TUMOUR
     Dosage: 10 MG, QD, ORAL
     Route: 048
     Dates: start: 20090101, end: 20090101

REACTIONS (1)
  - CHEST PAIN [None]
